FAERS Safety Report 5010719-X (Version None)
Quarter: 2006Q2

REPORT INFORMATION
  Report Type: 
  Country: None (occurrence: None)
  Receive Date: 20060525
  Receipt Date: 20060421
  Transmission Date: 20061013
  Serious: Yes (Death, Life-Threatening)
  Sender: FDA-Public Use
  Company Number: CL-BRISTOL-MYERS SQUIBB COMPANY-13354717

PATIENT
  Age: 55 Year
  Sex: Male

DRUGS (6)
  1. CDDP [Suspect]
     Indication: GASTRIC CANCER
     Route: 042
     Dates: start: 20060301, end: 20060301
  2. TS-1 [Suspect]
     Indication: GASTRIC CANCER
     Route: 048
     Dates: start: 20060301, end: 20060321
  3. TRAMADOL HCL [Suspect]
     Indication: PAIN
     Route: 048
     Dates: start: 20051001
  4. METAMIZOLE [Suspect]
     Indication: PAIN
     Route: 048
     Dates: start: 20051001
  5. METOCLOPRAMIDE [Suspect]
     Indication: NAUSEA
     Route: 048
     Dates: start: 20051001
  6. RANITIDINE [Suspect]
     Indication: PROPHYLAXIS AGAINST GASTROINTESTINAL ULCER
     Dates: start: 20051001

REACTIONS (2)
  - HYPERKALAEMIA [None]
  - RENAL FAILURE [None]
